FAERS Safety Report 7368246-0 (Version None)
Quarter: 2011Q1

REPORT INFORMATION
  Report Type: 
  Country: None (occurrence: None)
  Receive Date: 20110311
  Receipt Date: 20110307
  Transmission Date: 20110831
  Serious: Yes (Other)
  Sender: FDA-Public Use
  Company Number: 2011-00085

PATIENT
  Age: 79 Year
  Sex: Female
  Weight: 113.3993 kg

DRUGS (7)
  1. ACTONEL [Concomitant]
  2. ZICAM EXTREME CONGESTION SPRAY [Suspect]
     Indication: NASAL CONGESTION
     Dosage: Q 5 HOURS
     Dates: start: 20001001
  3. NOVALIN INSULIN [Concomitant]
  4. GLIPIZIDE [Concomitant]
  5. HYDROCHLOROTHIAZIDE [Concomitant]
  6. ASPIRIN [Concomitant]
  7. GABAPENTIN [Concomitant]

REACTIONS (5)
  - NASAL CONGESTION [None]
  - DYSPNOEA [None]
  - MALAISE [None]
  - CHEST PAIN [None]
  - CONDITION AGGRAVATED [None]
